FAERS Safety Report 5937957-3 (Version None)
Quarter: 2008Q4

REPORT INFORMATION
  Report Type: 
  Country: None (occurrence: None)
  Receive Date: 20081031
  Receipt Date: 20081021
  Transmission Date: 20090506
  Serious: Yes (Hospitalization)
  Sender: FDA-Public Use
  Company Number: FR-PFIZER INC-2008089319

PATIENT
  Sex: Male

DRUGS (6)
  1. TAHOR [Suspect]
     Route: 048
  2. NEBIVOLOL HCL [Suspect]
     Dosage: DAILY DOSE:10MG-FREQ:EVERY DAY
     Route: 048
     Dates: start: 20080801, end: 20080901
  3. ISOPTIN [Suspect]
     Route: 048
     Dates: start: 20080901, end: 20080901
  4. METFORMIN HCL [Suspect]
     Dosage: TEXT:TDD:3 DF-FREQ:EVERYDAY
     Route: 048
     Dates: start: 20060101
  5. DIAMICRON [Suspect]
     Dates: start: 20060101
  6. MICARDIS [Suspect]
     Route: 048

REACTIONS (1)
  - HAEMOLYTIC ANAEMIA [None]
